FAERS Safety Report 7281369-X (Version None)
Quarter: 2011Q1

REPORT INFORMATION
  Report Type: 
  Country: None (occurrence: None)
  Receive Date: 20110208
  Receipt Date: 20110131
  Transmission Date: 20110831
  Serious: Yes (Death, Other)
  Sender: FDA-Public Use
  Company Number: JP-AMGEN-JPNCT2010003780

PATIENT
  Age: 53 Year
  Sex: Male
  Weight: 63 kg

DRUGS (12)
  1. IRINOTECAN HYDROCHLORIDE [Concomitant]
     Indication: COLORECTAL CANCER
     Route: 041
     Dates: start: 20100621, end: 20100807
  2. CALCIUM LEVOFOLINATE [Concomitant]
     Indication: COLORECTAL CANCER
     Route: 041
     Dates: start: 20100621, end: 20100807
  3. PANITUMUMAB [Suspect]
     Indication: COLORECTAL CANCER
     Dosage: 6 MG/KG, Q2WK
     Route: 041
     Dates: start: 20100621, end: 20100807
  4. FLUOROURACIL [Concomitant]
     Route: 041
     Dates: start: 20100621, end: 20100807
  5. AMLODIPINE [Concomitant]
     Route: 048
  6. FLUOROURACIL [Concomitant]
     Indication: COLORECTAL CANCER
     Route: 040
     Dates: start: 20100621, end: 20100807
  7. CORTICOSTEROIDS [Concomitant]
     Indication: PROPHYLAXIS
     Route: 065
  8. URINORM [Concomitant]
     Indication: HYPERURICAEMIA
     Route: 048
  9. DECADRON [Concomitant]
     Route: 042
  10. ANTIHISTAMINES [Concomitant]
     Indication: PROPHYLAXIS
     Route: 065
  11. GRANISETRON HCL [Concomitant]
     Route: 042
  12. DAIKENTYUTO [Concomitant]
     Indication: ABDOMINAL ADHESIONS
     Route: 048

REACTIONS (5)
  - PARONYCHIA [None]
  - COLORECTAL CANCER [None]
  - ILEUS [None]
  - WHITE BLOOD CELL COUNT DECREASED [None]
  - ACNE [None]
